FAERS Safety Report 14529592 (Version 3)
Quarter: 2018Q4

REPORT INFORMATION
  Report Type: Spontaneous
  Country: US (occurrence: US)
  Receive Date: 20180214
  Receipt Date: 20181112
  Transmission Date: 20190204
  Serious: Yes (Hospitalization, Other)
  Sender: FDA-Public Use
  Company Number: US-JNJFOC-20180216985

PATIENT
  Age: 52 Year
  Sex: Male

DRUGS (1)
  1. INVOKANA [Suspect]
     Active Substance: CANAGLIFLOZIN
     Indication: PRODUCT USED FOR UNKNOWN INDICATION
     Route: 048

REACTIONS (5)
  - Limb discomfort [Unknown]
  - Neuropathic arthropathy [Unknown]
  - Wound [Unknown]
  - Osteomyelitis [Unknown]
  - Limb amputation [Unknown]

NARRATIVE: CASE EVENT DATE: 201708
